FAERS Safety Report 7637105-8 (Version None)
Quarter: 2011Q3

REPORT INFORMATION
  Report Type: 
  Country: None (occurrence: None)
  Receive Date: 20110722
  Receipt Date: 20110722
  Transmission Date: 20111222
  Serious: No
  Sender: FDA-Public Use
  Company Number: None

PATIENT
  Sex: Female
  Weight: 57.1532 kg

DRUGS (1)
  1. ATARAX [Suspect]
     Indication: ANXIETY
     Dosage: 1 TABLET EVERY 8 HRS 2 A DAY
     Dates: start: 20110301, end: 20110701

REACTIONS (3)
  - HYPERSOMNIA [None]
  - ABNORMAL DREAMS [None]
  - MIDDLE INSOMNIA [None]
